FAERS Safety Report 24357632 (Version 1)
Quarter: 2024Q3

REPORT INFORMATION
  Report Type: Spontaneous
  Country: US (occurrence: None)
  Receive Date: 20240923
  Receipt Date: 20240923
  Transmission Date: 20241017
  Serious: Yes (Hospitalization)
  Sender: Public
  Company Number: None

PATIENT
  Age: 69 Year
  Sex: Male
  Weight: 104.85 kg

DRUGS (18)
  1. TACROLIMUS [Suspect]
     Active Substance: TACROLIMUS
     Indication: Transplant
     Dosage: 0.5 MG/MG : BID (2-3 CAPS/DAY) ORAL ?
     Route: 048
     Dates: start: 20220301
  2. SODIUM CHLORIDE [Suspect]
     Active Substance: SODIUM CHLORIDE
     Indication: Blood sodium decreased
     Dosage: 1000MG 3 TIMES A DAY ORAL ?
     Route: 048
     Dates: start: 20221101
  3. LISINOPRIL [Suspect]
     Active Substance: LISINOPRIL
  4. URSODIOL [Concomitant]
     Active Substance: URSODIOL
     Dates: start: 20220726
  5. aspirin chewable tablet [Concomitant]
     Dates: start: 20220726
  6. AZATHIOPRINE [Concomitant]
     Active Substance: AZATHIOPRINE
     Dates: start: 20220726
  7. ATOVAQUONE [Concomitant]
     Active Substance: ATOVAQUONE
  8. TACROLIMUS [Concomitant]
     Active Substance: TACROLIMUS
     Dates: start: 20220501
  9. sodium chloride soluble tablet [Concomitant]
     Dates: start: 20231101
  10. LOKELMA [Concomitant]
     Active Substance: SODIUM ZIRCONIUM CYCLOSILICATE
     Dates: start: 20230517
  11. ATORVASTATIN [Concomitant]
     Active Substance: ATORVASTATIN
  12. CARVEDILOL [Concomitant]
     Active Substance: CARVEDILOL
  13. SERTRALINE [Concomitant]
     Active Substance: SERTRALINE HYDROCHLORIDE
  14. MELATONIN [Concomitant]
     Active Substance: MELATONIN
  15. CODEINE-GUAIFENESIN [Concomitant]
     Active Substance: CODEINE PHOSPHATE\GUAIFENESIN
     Dates: start: 20240913
  16. AMOXICILLIN [Concomitant]
     Active Substance: AMOXICILLIN
     Dates: start: 20240913
  17. TYLENOL [Concomitant]
     Active Substance: ACETAMINOPHEN
  18. PREDNISONE [Concomitant]
     Active Substance: PREDNISONE

REACTIONS (4)
  - Confusional state [None]
  - Asthenia [None]
  - Blood sodium decreased [None]
  - Cough [None]

NARRATIVE: CASE EVENT DATE: 20240916
